FAERS Safety Report 8525351-0 (Version None)
Quarter: 2012Q3

REPORT INFORMATION
  Report Type: 
  Country: None (occurrence: None)
  Receive Date: 20120720
  Receipt Date: 20120718
  Transmission Date: 20120928
  Serious: Yes (Other)
  Sender: FDA-Public Use
  Company Number: PHHY2012NO061667

PATIENT
  Sex: Female

DRUGS (3)
  1. ZOMETA [Suspect]
     Indication: HYPERCALCAEMIA
     Dates: start: 20030101, end: 20060101
  2. AROMASIN [Concomitant]
  3. FASLODEX [Concomitant]

REACTIONS (4)
  - BONE DEVELOPMENT ABNORMAL [None]
  - EXPOSED BONE IN JAW [None]
  - OSTEONECROSIS OF JAW [None]
  - IMPAIRED HEALING [None]
